FAERS Safety Report 16757146 (Version 2)
Quarter: 2019Q3

REPORT INFORMATION
  Report Type: Spontaneous
  Country: US (occurrence: US)
  Receive Date: 20190829
  Receipt Date: 20190924
  Transmission Date: 20191005
  Serious: No
  Sender: FDA-Public Use
  Company Number: US-SUNOVION-2019SUN003581

PATIENT
  Sex: Female

DRUGS (4)
  1. LATUDA [Suspect]
     Active Substance: LURASIDONE HYDROCHLORIDE
     Indication: PSYCHOTIC DISORDER
     Dosage: 40 MG
     Route: 048
     Dates: start: 201903
  2. LATUDA [Suspect]
     Active Substance: LURASIDONE HYDROCHLORIDE
     Indication: SCHIZOAFFECTIVE DISORDER
     Dosage: 60 MG
     Route: 048
     Dates: start: 201903
  3. LATUDA [Suspect]
     Active Substance: LURASIDONE HYDROCHLORIDE
     Indication: DEPRESSION
  4. PARNATE [Concomitant]
     Active Substance: TRANYLCYPROMINE SULFATE
     Dosage: UNK
     Route: 065

REACTIONS (7)
  - Nausea [Recovering/Resolving]
  - Eructation [Unknown]
  - Gluten sensitivity [Unknown]
  - Feeling abnormal [Unknown]
  - Dyspepsia [Recovering/Resolving]
  - Abdominal distension [Unknown]
  - Off label use [Unknown]
